FAERS Safety Report 24033051 (Version 3)
Quarter: 2025Q1

REPORT INFORMATION
  Report Type: Spontaneous
  Country: US (occurrence: US)
  Receive Date: 20240701
  Receipt Date: 20250310
  Transmission Date: 20250409
  Serious: Yes (Death, Other)
  Sender: CSL BEHRING
  Company Number: US-BEH-2024174583

PATIENT
  Age: 74 Year
  Sex: Male

DRUGS (2)
  1. HIZENTRA [Suspect]
     Active Substance: HUMAN IMMUNOGLOBULIN G
     Indication: Immunodeficiency common variable
     Dosage: 14 G, QW
     Route: 058
     Dates: start: 202206
  2. HIZENTRA [Suspect]
     Active Substance: HUMAN IMMUNOGLOBULIN G
     Dosage: 14 G, QW
     Route: 058
     Dates: start: 202206

REACTIONS (4)
  - Death [Fatal]
  - Neoplasm malignant [Unknown]
  - Weight decreased [Unknown]
  - Asthenia [Unknown]

NARRATIVE: CASE EVENT DATE: 20240620
